FAERS Safety Report 16600665 (Version 1)
Quarter: 2019Q3

REPORT INFORMATION
  Report Type: Spontaneous
  Country: FR (occurrence: FR)
  Receive Date: 20190720
  Receipt Date: 20190720
  Transmission Date: 20191004
  Serious: Yes (Other)
  Sender: FDA-Public Use
  Company Number: FR-ACCORD-140856

PATIENT
  Age: 79 Year
  Sex: Male
  Weight: 80 kg

DRUGS (3)
  1. METHYLPREDNISOLONE. [Suspect]
     Active Substance: METHYLPREDNISOLONE
     Indication: PREMEDICATION
     Route: 042
     Dates: start: 20190704, end: 20190704
  2. ETOPOSIDE MYLAN [Suspect]
     Active Substance: ETOPOSIDE
     Indication: BRONCHIAL CARCINOMA
     Dosage: 20 MG / ML,
     Route: 042
     Dates: start: 20190704, end: 20190704
  3. CARBOPLATINE ACCORD [Suspect]
     Active Substance: CARBOPLATIN
     Indication: BRONCHIAL CARCINOMA
     Dosage: 600 MG/60 ML
     Route: 042
     Dates: start: 20190704, end: 20190704

REACTIONS (6)
  - Hypertension [Recovered/Resolved]
  - Dyspnoea [Recovered/Resolved]
  - Hot flush [Recovered/Resolved]
  - Erythema [Recovered/Resolved]
  - Vision blurred [Recovered/Resolved]
  - Oxygen saturation decreased [Recovered/Resolved]

NARRATIVE: CASE EVENT DATE: 20190704
